FAERS Safety Report 18452852 (Version 1)
Quarter: 2020Q4

REPORT INFORMATION
  Report Type: Spontaneous
  Country: US (occurrence: US)
  Receive Date: 20201102
  Receipt Date: 20201102
  Transmission Date: 20210114
  Serious: No
  Sender: FDA-Public Use
  Company Number: US-BAYER-2020-231725

PATIENT
  Age: 72 Year
  Sex: Female

DRUGS (3)
  1. AUGMENTIN [Concomitant]
     Active Substance: AMOXICILLIN\CLAVULANATE POTASSIUM
  2. LENVIMA [Suspect]
     Active Substance: LENVATINIB
     Dosage: 14 MG, UNK
  3. CIPRO [Suspect]
     Active Substance: CIPROFLOXACIN HYDROCHLORIDE
     Indication: URINARY TRACT INFECTION
     Dosage: UNK
     Dates: end: 202010

REACTIONS (2)
  - Tongue discomfort [None]
  - Oral discomfort [None]

NARRATIVE: CASE EVENT DATE: 202010
